FAERS Safety Report 24602196 (Version 2)
Quarter: 2025Q1

REPORT INFORMATION
  Report Type: Spontaneous
  Country: DE (occurrence: DE)
  Receive Date: 20241111
  Receipt Date: 20250221
  Transmission Date: 20250409
  Serious: No
  Sender: ROCHE
  Company Number: DE-ROCHE-10000125878

PATIENT
  Age: 49 Year
  Sex: Female
  Weight: 91 kg

DRUGS (13)
  1. OCREVUS [Suspect]
     Active Substance: OCRELIZUMAB
     Indication: Multiple sclerosis
     Route: 058
     Dates: start: 20241023
  2. DEXAMETHASONE [Concomitant]
     Active Substance: DEXAMETHASONE
  3. DESLORATADINE [Concomitant]
     Active Substance: DESLORATADINE
  4. ACETAMINOPHEN [Concomitant]
     Active Substance: ACETAMINOPHEN
  5. BACLOFEN [Concomitant]
     Active Substance: BACLOFEN
  6. ESCITALOPRAM OXALATE [Concomitant]
     Active Substance: ESCITALOPRAM OXALATE
  7. VITAMIN D3 [Concomitant]
     Active Substance: CHOLECALCIFEROL
  8. ISOTRETINOIN [Concomitant]
     Active Substance: ISOTRETINOIN
  9. SITOBACT [Concomitant]
  10. METROLOTION [Concomitant]
     Active Substance: METRONIDAZOLE
  11. AZELAIC ACID [Concomitant]
     Active Substance: AZELAIC ACID
  12. SOOLANTRA [Concomitant]
     Active Substance: IVERMECTIN
  13. METAMIZOLE [Concomitant]
     Active Substance: METAMIZOLE

REACTIONS (7)
  - Injection site erythema [Unknown]
  - Blood pressure decreased [Recovered/Resolved]
  - Palpitations [Recovered/Resolved]
  - Vomiting [Recovered/Resolved]
  - Nasopharyngitis [Recovered/Resolved]
  - Oral herpes [Unknown]
  - Fatigue [Recovered/Resolved]

NARRATIVE: CASE EVENT DATE: 20241024
